FAERS Safety Report 4424871-8 (Version None)
Quarter: 2004Q3

REPORT INFORMATION
  Report Type: 
  Country: None (occurrence: None)
  Receive Date: 20040809
  Receipt Date: 20040723
  Transmission Date: 20050211
  Serious: Yes (Hospitalization)
  Sender: FDA-Public Use
  Company Number: 2004-DE-04055GL

PATIENT
  Age: 83 Year
  Sex: Female

DRUGS (2)
  1. TELMISARTAN (TELMISARTAN) (TA) (TELMISARTAN) [Suspect]
     Indication: ESSENTIAL HYPERTENSION
     Dosage: 80 MG PO
     Route: 048
     Dates: start: 20020601, end: 20040601
  2. CELECOXIB (CELECOXIB) [Concomitant]

REACTIONS (3)
  - ATAXIA [None]
  - SCOTOMA [None]
  - TINNITUS [None]
